FAERS Safety Report 7323314-4 (Version None)
Quarter: 2011Q1

REPORT INFORMATION
  Report Type: 
  Country: None (occurrence: None)
  Receive Date: 20110301
  Receipt Date: 20110223
  Transmission Date: 20110831
  Serious: Yes (Hospitalization, Other)
  Sender: FDA-Public Use
  Company Number: BR-PFIZER INC-2011039531

PATIENT
  Age: 50 Year
  Sex: Male
  Weight: 115 kg

DRUGS (8)
  1. ATENOLOL [Concomitant]
     Indication: BLOOD PRESSURE INCREASED
     Dosage: 50 MG, 2X/DAY
  2. CAPTOPRIL [Concomitant]
     Indication: BLOOD PRESSURE INCREASED
     Dosage: UNK,4X/DAY
  3. LIPITOR [Suspect]
     Indication: BLOOD TRIGLYCERIDES INCREASED
     Dosage: 20 MG, 1X/DAY
     Route: 048
     Dates: start: 20060101, end: 20110218
  4. OMEPRAZOLE [Concomitant]
     Indication: GASTRITIS
     Dosage: UNK
  5. INSULIN [Concomitant]
     Indication: HYPERGLYCAEMIA
     Dosage: UNK
  6. FUROSEMIDE [Concomitant]
     Indication: BLOOD PRESSURE INCREASED
     Dosage: UNK, 1X/DAY
  7. BEZAFIBRATE - SLOW RELEASE ^RATIOPHARM^ [Concomitant]
     Indication: BLOOD TRIGLYCERIDES INCREASED
     Dosage: UNK
  8. DOXAZOSIN MESILATE [Concomitant]
     Indication: PROSTATIC DISORDER
     Dosage: 4 MG, 1X/DAY

REACTIONS (5)
  - HYPERGLYCAEMIA [None]
  - INFARCTION [None]
  - PROSTATIC DISORDER [None]
  - BLOOD CREATINE PHOSPHOKINASE INCREASED [None]
  - CORONARY ARTERY BYPASS [None]
